FAERS Safety Report 7988473-9 (Version None)
Quarter: 2011Q4

REPORT INFORMATION
  Report Type: 
  Country: None (occurrence: None)
  Receive Date: 20111216
  Receipt Date: 20111212
  Transmission Date: 20120403
  Serious: Yes (Death, Hospitalization)
  Sender: FDA-Public Use
  Company Number: US-ASTRAZENECA-2011SE68397

PATIENT
  Age: 83 Year
  Sex: Male

DRUGS (13)
  1. SEROQUEL [Suspect]
     Indication: DEMENTIA
     Route: 048
     Dates: start: 20100901
  2. FLOMAX [Concomitant]
  3. LISINOPRIL [Concomitant]
  4. PREDNISONE [Concomitant]
  5. LASIX [Concomitant]
  6. METHOTREXATE [Concomitant]
  7. PROSCAR [Concomitant]
  8. TOPROL-XL [Concomitant]
  9. ARICEPT [Concomitant]
  10. FLONASE [Concomitant]
  11. NAMENDA [Concomitant]
  12. TESSALON [Concomitant]
     Indication: COUGH
  13. ALBUTEROL INHALER [Concomitant]

REACTIONS (2)
  - OFF LABEL USE [None]
  - DEATH [None]
